FAERS Safety Report 4877152-2 (Version None)
Quarter: 2005Q4

REPORT INFORMATION
  Report Type: 
  Country: None (occurrence: None)
  Receive Date: 20051206
  Receipt Date: 20050816
  Transmission Date: 20060501
  Serious: No
  Sender: FDA-Public Use
  Company Number: USA0508105517

PATIENT
  Sex: Female

DRUGS (2)
  1. CYMBALTA [Suspect]
     Indication: NEURALGIA
     Dosage: 120 MG DAY
     Dates: start: 20050401
  2. EFFEXOR [Concomitant]

REACTIONS (2)
  - ANXIETY [None]
  - NEURALGIA [None]
